FAERS Safety Report 8242968-1 (Version None)
Quarter: 2012Q1

REPORT INFORMATION
  Report Type: 
  Country: None (occurrence: None)
  Receive Date: 20120329
  Receipt Date: 20120321
  Transmission Date: 20120608
  Serious: Yes (Hospitalization, Other)
  Sender: FDA-Public Use
  Company Number: BR-PFIZER INC-2012074959

PATIENT
  Age: 59 Year
  Sex: Male
  Weight: 73 kg

DRUGS (14)
  1. ENALAPRIL [Concomitant]
     Indication: HYPERTENSION
     Dosage: UNK
     Dates: start: 20020101
  2. XALATAN [Suspect]
     Indication: GLAUCOMA
     Dosage: 3UG (1 DROP IN EACH EYE) 1X/DAY
     Route: 047
     Dates: start: 19970101
  3. CLONAZEPAM [Concomitant]
     Dosage: UNK
     Dates: start: 20110101
  4. LORAZEPAM [Concomitant]
     Indication: ANXIETY
  5. CLOZAPINE [Concomitant]
  6. AMARYL [Concomitant]
     Indication: BLOOD CHOLESTEROL INCREASED
     Dosage: UNK
     Dates: start: 20020101
  7. TIMOLOL MALEATE [Concomitant]
     Indication: GLAUCOMA
     Dosage: 1 DROP IN EACH EYE, 3X/DAY
  8. AMANTADINE HYDROCHLORIDE [Concomitant]
  9. ALPHAGAN [Concomitant]
     Indication: GLAUCOMA
     Dosage: 1 DROP IN EACH EYE, 3X/DAY
  10. LANSOPRAZOLE [Concomitant]
     Indication: GASTRITIS
  11. METFORMIN [Concomitant]
  12. ROHYPNOL [Concomitant]
  13. LIPLESS [Concomitant]
     Indication: BLOOD CHOLESTEROL INCREASED
  14. TRUSOPT [Concomitant]
     Indication: GLAUCOMA
     Dosage: 1 DROP IN EACH EYE, 3X/DAY

REACTIONS (6)
  - GAIT DISTURBANCE [None]
  - VISUAL ACUITY REDUCED [None]
  - EYE DISORDER [None]
  - MENTAL DISORDER [None]
  - DRUG INEFFECTIVE [None]
  - SALIVARY HYPERSECRETION [None]
